FAERS Safety Report 19503162 (Version 1)
Quarter: 2021Q3

REPORT INFORMATION
  Report Type: Spontaneous
  Country: DE (occurrence: DE)
  Receive Date: 20210707
  Receipt Date: 20210707
  Transmission Date: 20211014
  Serious: Yes (Hospitalization)
  Sender: FDA-Public Use
  Company Number: NVSC2021DE145519

PATIENT
  Age: 76 Year
  Sex: Male
  Weight: 71.8 kg

DRUGS (3)
  1. MELPHALAN. [Suspect]
     Active Substance: MELPHALAN
     Indication: PLASMA CELL MYELOMA
     Dosage: 14 MG (DATE OF THE LAST DOSAGE BEFORE EVENT ONSET 10 NOV 2016)
     Route: 065
     Dates: start: 20160531
  2. PREDNISONE. [Suspect]
     Active Substance: PREDNISONE
     Indication: PLASMA CELL MYELOMA
     Dosage: 100 MG (DATE OF THE LAST DOSAGE BEFORE EVENT ONSET 10 NOV 2016)
     Route: 065
     Dates: start: 20160531
  3. VELCADE [Suspect]
     Active Substance: BORTEZOMIB
     Indication: PLASMA CELL MYELOMA
     Dosage: 2.28 MG (DATE OF THE LAST DOSAGE BEFORE EVENT ONSET 17 NOV 2016)
     Route: 065

REACTIONS (1)
  - Urticaria [Recovered/Resolved]

NARRATIVE: CASE EVENT DATE: 20161119
